FAERS Safety Report 6972961-8 (Version None)
Quarter: 2010Q3

REPORT INFORMATION
  Report Type: 
  Country: None (occurrence: None)
  Receive Date: 20100909
  Receipt Date: 20100622
  Transmission Date: 20110219
  Serious: No
  Sender: FDA-Public Use
  Company Number: US-KINGPHARMUSA00001-K201000789

PATIENT
  Age: 58 Year
  Sex: Male
  Weight: 88.435 kg

DRUGS (3)
  1. EMBEDA [Suspect]
     Indication: BACK PAIN
     Dosage: 80 MG, Q 12 HOURS
     Route: 048
     Dates: start: 20100401, end: 20100501
  2. EMBEDA [Suspect]
     Dosage: 60 MG, Q 12 HOURS
     Route: 048
     Dates: start: 20100201, end: 20100401
  3. LORTAB [Concomitant]
     Indication: BREAKTHROUGH PAIN
     Dosage: UNK

REACTIONS (8)
  - AGITATION [None]
  - ANXIETY [None]
  - BREAKTHROUGH PAIN [None]
  - DIARRHOEA [None]
  - DISCOMFORT [None]
  - DRUG INEFFECTIVE [None]
  - HYPERHIDROSIS [None]
  - WITHDRAWAL SYNDROME [None]
